FAERS Safety Report 4715037-2 (Version None)
Quarter: 2005Q2

REPORT INFORMATION
  Report Type: 
  Country: None (occurrence: None)
  Receive Date: 20050630
  Receipt Date: 20050509
  Transmission Date: 20051028
  Serious: Yes (Life-Threatening, Hospitalization)
  Sender: FDA-Public Use
  Company Number: 214253

PATIENT
  Age: 59 Year
  Sex: Male

DRUGS (3)
  1. AVASTIN [Suspect]
     Indication: GASTRIC CANCER
  2. CISPLATIN [Concomitant]
  3. CAMPTOSAR [Concomitant]

REACTIONS (1)
  - MYOCARDIAL INFARCTION [None]
